FAERS Safety Report 19892361 (Version 2)
Quarter: 2021Q4

REPORT INFORMATION
  Report Type: Spontaneous
  Country: HR (occurrence: HR)
  Receive Date: 20210928
  Receipt Date: 20211008
  Transmission Date: 20220303
  Serious: Yes (Other)
  Sender: FDA-Public Use
  Company Number: HR-009507513-1911HRV005205

PATIENT
  Age: 36 Year
  Sex: Female

DRUGS (2)
  1. PREVYMIS [Suspect]
     Active Substance: LETERMOVIR
     Dosage: UNK
     Dates: start: 20191019, end: 20191111
  2. PREVYMIS [Suspect]
     Active Substance: LETERMOVIR
     Dosage: UNK
     Dates: start: 2019, end: 2019

REACTIONS (7)
  - Cytomegalovirus infection reactivation [Unknown]
  - Arthralgia [Recovered/Resolved]
  - Arthralgia [Unknown]
  - Arthralgia [Recovered/Resolved]
  - Arthralgia [Unknown]
  - Myalgia [Recovered/Resolved]
  - Myalgia [Unknown]

NARRATIVE: CASE EVENT DATE: 20190101
